FAERS Safety Report 5170002-9 (Version None)
Quarter: 2006Q4

REPORT INFORMATION
  Report Type: 
  Country: None (occurrence: None)
  Receive Date: 20061212
  Receipt Date: 20061204
  Transmission Date: 20070319
  Serious: Yes (Congenital Anomaly)
  Sender: FDA-Public Use
  Company Number: GB-GLAXOSMITHKLINE-B0449836A

PATIENT

DRUGS (5)
  1. ABACAVIR SULFATE LAMIVUDINE AND ZIDOVUDINE [Suspect]
     Dates: end: 20051225
  2. COMBIVIR [Suspect]
     Dates: start: 20060411
  3. INVIRASE [Suspect]
     Dates: start: 20060411
  4. RITONAVIR [Suspect]
     Dosage: 200MG PER DAY
     Dates: start: 20060411
  5. VIRAMUNE [Suspect]
     Dosage: 400MG PER DAY
     Dates: end: 20051225

REACTIONS (1)
  - TRISOMY 21 [None]
